FAERS Safety Report 6413082-2 (Version None)
Quarter: 2009Q4

REPORT INFORMATION
  Report Type: 
  Country: None (occurrence: None)
  Receive Date: 20091022
  Receipt Date: 20091022
  Transmission Date: 20100525
  Serious: Yes (Other)
  Sender: FDA-Public Use
  Company Number: None

PATIENT
  Sex: Male
  Weight: 86.1834 kg

DRUGS (1)
  1. CREST PRO-HEALTH W/ENAMEL GUARD CREST [Suspect]
     Indication: DENTAL DISORDER PROPHYLAXIS
     Dosage: BRUSHED TWICE A DAY TWICE A DAY DENTAL
     Route: 004
     Dates: start: 20091016, end: 20091018

REACTIONS (2)
  - DRUG HYPERSENSITIVITY [None]
  - URTICARIA [None]
